FAERS Safety Report 8080430-X (Version None)
Quarter: 2012Q1

REPORT INFORMATION
  Report Type: 
  Country: None (occurrence: None)
  Receive Date: 20120130
  Receipt Date: 20120124
  Transmission Date: 20120608
  Serious: Yes (Death)
  Sender: FDA-Public Use
  Company Number: TW-SANOFI-AVENTIS-2012SA005929

PATIENT
  Age: 51 Year
  Sex: Male

DRUGS (5)
  1. DOCETAXEL [Suspect]
     Dosage: DOSE REDUCED
     Route: 065
  2. DOCETAXEL [Suspect]
     Dosage: DOSE REDUCED
     Route: 065
  3. CISPLATIN [Suspect]
     Indication: METASTATIC SQUAMOUS CELL CARCINOMA
     Dosage: RECEIVED 24 HOUR INFUSION ON DAY 1, CYCLES 1-2
     Route: 042
  4. CISPLATIN [Suspect]
     Dosage: RECEIVED 24 HOUR INFUSION ON DAY 1
     Route: 042
  5. DOCETAXEL [Suspect]
     Indication: METASTATIC SQUAMOUS CELL CARCINOMA
     Dosage: 1 HOUR INFUSION ON DAY 1
     Route: 042

REACTIONS (1)
  - LEUKOPENIA [None]
